FAERS Safety Report 9605588 (Version 4)
Quarter: 2014Q1

REPORT INFORMATION
  Report Type: Spontaneous
  Country: IT (occurrence: IT)
  Receive Date: 20131008
  Receipt Date: 20140226
  Transmission Date: 20141002
  Serious: Yes (Other)
  Sender: FDA-Public Use
  Company Number: IT-PFIZER INC-2013287375

PATIENT
  Age: 36 Year
  Sex: Male

DRUGS (2)
  1. XANAX [Suspect]
     Indication: DEPRESSION
     Dosage: 1.5 MG TOTAL (THREE 0.5 MG TABLETS)
     Route: 048
     Dates: start: 20130920, end: 20130920
  2. MIRTAZAPINE [Suspect]
     Indication: DEPRESSION
     Dosage: 60 MG (TWO TABLETS), TOTAL
     Route: 048
     Dates: start: 20130920, end: 20130920

REACTIONS (4)
  - Intentional overdose [Recovered/Resolved]
  - Toxicity to various agents [Recovered/Resolved]
  - Sedation [Recovered/Resolved]
  - Restlessness [Recovered/Resolved]
